FAERS Safety Report 25171728 (Version 1)
Quarter: 2025Q2

REPORT INFORMATION
  Report Type: Spontaneous
  Country: GB (occurrence: GB)
  Receive Date: 20250408
  Receipt Date: 20250408
  Transmission Date: 20250716
  Serious: Yes (Other)
  Sender: ELI LILLY AND CO
  Company Number: GB-ELI_LILLY_AND_COMPANY-GB202504001615

PATIENT
  Sex: Female

DRUGS (1)
  1. ABEMACICLIB [Suspect]
     Active Substance: ABEMACICLIB
     Indication: Metastatic neoplasm
     Dosage: 150 MG, BID
     Route: 048

REACTIONS (1)
  - Pulmonary embolism [Recovered/Resolved]
